FAERS Safety Report 6913674-8 (Version None)
Quarter: 2010Q3

REPORT INFORMATION
  Report Type: 
  Country: None (occurrence: None)
  Receive Date: 20100806
  Receipt Date: 20100806
  Transmission Date: 20110219
  Serious: Yes (Life-Threatening, Hospitalization, Disabling)
  Sender: FDA-Public Use
  Company Number: None

PATIENT
  Sex: Female
  Weight: 112.0385 kg

DRUGS (1)
  1. DIVALPROEX EXTENDED-RELEASE [Suspect]
     Indication: BIPOLAR I DISORDER
     Dosage: 2,000 MG DAILY PM ORAL
     Route: 048
     Dates: start: 20100111, end: 20100120

REACTIONS (6)
  - CHILLS [None]
  - CONFUSIONAL STATE [None]
  - RENAL FAILURE [None]
  - SPEECH DISORDER [None]
  - TIC [None]
  - VISION BLURRED [None]
